FAERS Safety Report 7414401-0 (Version None)
Quarter: 2011Q2

REPORT INFORMATION
  Report Type: 
  Country: None (occurrence: None)
  Receive Date: 20110411
  Receipt Date: 20110411
  Transmission Date: 20111010
  Serious: Yes (Life-Threatening, Hospitalization, Other)
  Sender: FDA-Public Use
  Company Number: None

PATIENT
  Sex: Female
  Weight: 101.6057 kg

DRUGS (1)
  1. VESICARE [Suspect]
     Indication: URINARY INCONTINENCE
     Dosage: 10MG 1 PILL A DAY PO
     Route: 048
     Dates: start: 20100330, end: 20100615

REACTIONS (7)
  - BLOOD PRESSURE DECREASED [None]
  - BONE DENSITY DECREASED [None]
  - TOOTH LOSS [None]
  - DRY MOUTH [None]
  - PERIODONTAL DISEASE [None]
  - LOSS OF CONSCIOUSNESS [None]
  - DEHYDRATION [None]
